FAERS Safety Report 4367567-3 (Version None)
Quarter: 2004Q2

REPORT INFORMATION
  Report Type: 
  Country: None (occurrence: None)
  Receive Date: 20040526
  Receipt Date: 20040513
  Transmission Date: 20050107
  Serious: Yes (Other)
  Sender: FDA-Public Use
  Company Number: 2004032420

PATIENT
  Sex: Male
  Weight: 88.4514 kg

DRUGS (4)
  1. NEURONTIN [Suspect]
     Indication: PAIN
     Dosage: 900 MG (300 MG, TID), ORAL
     Route: 048
     Dates: start: 19960101
  2. DIAZEPAM [Concomitant]
  3. LIDOCAINE HYDROCHLORIDE [Concomitant]
  4. IBUPROFEN [Concomitant]

REACTIONS (5)
  - BONE PAIN [None]
  - NERVE GRAFT [None]
  - PAIN EXACERBATED [None]
  - POST PROCEDURAL PAIN [None]
  - SUICIDAL IDEATION [None]
